FAERS Safety Report 12700321 (Version 1)
Quarter: 2016Q3

REPORT INFORMATION
  Report Type: Spontaneous
  Country: US (occurrence: US)
  Receive Date: 20160830
  Receipt Date: 20160830
  Transmission Date: 20161109
  Serious: No
  Sender: FDA-Public Use
  Company Number: US-SA-2015SA176945

PATIENT
  Age: 17 Year
  Sex: Male

DRUGS (8)
  1. ALLEGRA [Concomitant]
     Active Substance: FEXOFENADINE HYDROCHLORIDE
     Indication: PREMEDICATION
  2. FABRAZYME [Suspect]
     Active Substance: AGALSIDASE BETA
     Indication: FABRY^S DISEASE
     Route: 041
     Dates: start: 20150506
  3. VALIUM [Concomitant]
     Active Substance: DIAZEPAM
     Route: 048
  4. FABRAZYME [Suspect]
     Active Substance: AGALSIDASE BETA
     Indication: FABRY^S DISEASE
     Route: 041
     Dates: start: 20070614
  5. MOTRIN [Concomitant]
     Active Substance: IBUPROFEN
     Indication: PREMEDICATION
  6. BENADRYL [Concomitant]
     Active Substance: DIPHENHYDRAMINE HYDROCHLORIDE
  7. GRALISE [Concomitant]
     Active Substance: GABAPENTIN
  8. TYLENOL [Concomitant]
     Active Substance: ACETAMINOPHEN
     Indication: PREMEDICATION
     Route: 048

REACTIONS (10)
  - Nausea [Unknown]
  - Anxiety [Unknown]
  - Pain in extremity [Unknown]
  - Malaise [Unknown]
  - Pain in extremity [Unknown]
  - Tremor [Unknown]
  - Somnolence [Unknown]
  - Feeling abnormal [Unknown]
  - Restlessness [Unknown]
  - Burning sensation [Unknown]

NARRATIVE: CASE EVENT DATE: 20140314
